FAERS Safety Report 15992595 (Version 10)
Quarter: 2019Q4

REPORT INFORMATION
  Report Type: Spontaneous
  Country: US (occurrence: US)
  Receive Date: 20190221
  Receipt Date: 20191218
  Transmission Date: 20200122
  Serious: Yes (Disabling, Other)
  Sender: FDA-Public Use
  Company Number: US-ACTELION-A-US2019-186429

PATIENT
  Sex: Female
  Weight: 81.63 kg

DRUGS (4)
  1. OPSUMIT [Suspect]
     Active Substance: MACITENTAN
     Indication: PULMONARY HYPERTENSION
     Dosage: 10 MG, QD
     Route: 048
     Dates: start: 20150123
  2. COUMADIN [Concomitant]
     Active Substance: WARFARIN SODIUM
  3. OXYGEN. [Concomitant]
     Active Substance: OXYGEN
  4. AMLODIPINE [Concomitant]
     Active Substance: AMLODIPINE BESYLATE

REACTIONS (13)
  - Fatigue [Unknown]
  - Therapeutic product effect delayed [Unknown]
  - Arthritis [Unknown]
  - Bedridden [Recovered/Resolved]
  - Pain [Unknown]
  - Peripheral swelling [Unknown]
  - Bladder cancer [Unknown]
  - Autoimmune disorder [Unknown]
  - Hypophagia [Unknown]
  - Insomnia [Unknown]
  - Memory impairment [Unknown]
  - Dyspnoea [Unknown]
  - Anxiety [Unknown]
